FAERS Safety Report 8923377 (Version 1)
Quarter: 2012Q4

REPORT INFORMATION
  Report Type: 
  Country: BR (occurrence: BR)
  Receive Date: 20121123
  Receipt Date: 20121123
  Transmission Date: 20130627
  Serious: Yes (Other)
  Sender: FDA-Public Use
  Company Number: PHHY2012BR105317

PATIENT

DRUGS (1)
  1. CODATEN [Suspect]
     Indication: ARTHRALGIA
     Dosage: 2 DF, QD
     Route: 048
     Dates: end: 201209

REACTIONS (3)
  - Prostate cancer [Recovering/Resolving]
  - Thrombosis [Not Recovered/Not Resolved]
  - Pain [Not Recovered/Not Resolved]
